FAERS Safety Report 8130448-3 (Version None)
Quarter: 2012Q1

REPORT INFORMATION
  Report Type: 
  Country: None (occurrence: None)
  Receive Date: 20120210
  Receipt Date: 20120208
  Transmission Date: 20120608
  Serious: Yes (Hospitalization)
  Sender: FDA-Public Use
  Company Number: CH-MERCK-1202USA01370

PATIENT
  Age: 83 Year
  Sex: Female

DRUGS (3)
  1. CALCIMAGON D3 [Concomitant]
     Route: 048
  2. FOSAMAX [Suspect]
     Route: 048
     Dates: start: 20091201, end: 20120127
  3. MICARDIS [Concomitant]
     Indication: HYPERTENSION
     Route: 048

REACTIONS (1)
  - PATHOLOGICAL FRACTURE [None]
